FAERS Safety Report 8775974 (Version 1)
Quarter: 2012Q4

REPORT INFORMATION
  Report Type: 
  Country: US (occurrence: US)
  Receive Date: 20120910
  Receipt Date: 20120910
  Transmission Date: 20130627
  Serious: Yes (Death)
  Sender: FDA-Public Use
  Company Number: US-NOVEN-12US005272

PATIENT
  Age: 8 Year
  Sex: Female

DRUGS (8)
  1. FENTANYL [Suspect]
     Indication: PAIN
     Route: 062
  2. MORPHINE [Suspect]
     Indication: PAIN
     Dosage: 96 mg, qd on average
     Route: 042
  3. PROMETHAZINE [Concomitant]
     Indication: NAUSEA
  4. SCOPOLAMINE /00008701/ [Concomitant]
     Indication: NAUSEA
  5. GRANISETRON [Concomitant]
     Indication: NAUSEA
  6. METHYLNALTREXONE [Concomitant]
     Dosage: 3 mg, UNK
     Route: 058
  7. POLYETHYLENE GLYCOL 3350 [Concomitant]
     Dosage: 8.5 g, UNK
  8. MAGNESIUM CITRATE [Concomitant]
     Dosage: 100 ml, UNK
     Route: 048

REACTIONS (3)
  - Disease progression [Fatal]
  - Constipation [None]
  - Nausea [None]
